FAERS Safety Report 6979338-X (Version None)
Quarter: 2010Q3

REPORT INFORMATION
  Report Type: 
  Country: None (occurrence: None)
  Receive Date: 20100913
  Receipt Date: 20100830
  Transmission Date: 20110219
  Serious: Yes (Other)
  Sender: FDA-Public Use
  Company Number: TW-MYLANLABS-2010S1015806

PATIENT
  Age: 53 Year
  Sex: Female

DRUGS (3)
  1. QUETIAPINE [Interacting]
     Indication: MANIA
     Route: 065
  2. VALPROIC ACID [Suspect]
     Indication: BIPOLAR DISORDER
     Dosage: TITRATED TO 1000 MG/DAY OVER 10 DAYS.
     Route: 065
  3. VALPROIC ACID [Interacting]
     Dosage: TITRATED UP FROM 500 MG/DAY OVER 10 DAYS.
     Route: 065

REACTIONS (2)
  - DELIRIUM [None]
  - DRUG INTERACTION [None]
